FAERS Safety Report 8151456-2 (Version None)
Quarter: 2012Q1

REPORT INFORMATION
  Report Type: 
  Country: None (occurrence: None)
  Receive Date: 20120220
  Receipt Date: 20120210
  Transmission Date: 20120608
  Serious: Yes (Hospitalization)
  Sender: FDA-Public Use
  Company Number: FR-ROCHE-1039391

PATIENT
  Sex: Female

DRUGS (4)
  1. ROCEPHIN [Suspect]
     Indication: BRONCHITIS
     Route: 030
     Dates: start: 20111122, end: 20111122
  2. YAZ [Concomitant]
  3. KEPPRA [Concomitant]
     Dates: start: 20111020
  4. FERROUS SULFATE TAB [Concomitant]

REACTIONS (1)
  - TONIC CONVULSION [None]
